FAERS Safety Report 6185437-5 (Version None)
Quarter: 2009Q2

REPORT INFORMATION
  Report Type: 
  Country: None (occurrence: None)
  Receive Date: 20090511
  Receipt Date: 20090507
  Transmission Date: 20091009
  Serious: Yes (Life-Threatening, Hospitalization)
  Sender: FDA-Public Use
  Company Number: NL-ASTRAZENECA-2009AC01320

PATIENT
  Age: 43 Year
  Sex: Female
  Weight: 72 kg

DRUGS (3)
  1. SEROQUEL [Suspect]
     Indication: SCHIZOAFFECTIVE DISORDER
     Route: 048
  2. SEROQUEL [Suspect]
     Route: 048
     Dates: start: 20090302, end: 20090422
  3. TEMAZEPAM [Concomitant]
     Route: 048
     Dates: end: 20090422

REACTIONS (4)
  - COMA [None]
  - CONVULSION [None]
  - HYPONATRAEMIA [None]
  - RESPIRATORY FAILURE [None]
